FAERS Safety Report 10255341 (Version 4)
Quarter: 2015Q1

REPORT INFORMATION
  Report Type: Spontaneous
  Country: US (occurrence: US)
  Receive Date: 20140624
  Receipt Date: 20150224
  Transmission Date: 20150720
  Serious: No
  Sender: FDA-Public Use
  Company Number: US-PFIZER INC-2014172440

PATIENT
  Age: 75 Year
  Sex: Female

DRUGS (2)
  1. CELEBREX [Suspect]
     Active Substance: CELECOXIB
     Indication: POST LAMINECTOMY SYNDROME
     Dosage: 200 MG, 1X/DAY AS NEEDED
     Route: 048
  2. LYRICA [Suspect]
     Active Substance: PREGABALIN
     Indication: POST LAMINECTOMY SYNDROME
     Dosage: 150 MG, 2X/DAY (150 MG, 1 CAPSULE TWICE A DAY)
     Route: 048

REACTIONS (2)
  - Gastric disorder [Unknown]
  - Back disorder [Unknown]
